FAERS Safety Report 7368026-6 (Version None)
Quarter: 2011Q1

REPORT INFORMATION
  Report Type: 
  Country: None (occurrence: None)
  Receive Date: 20110323
  Receipt Date: 20110317
  Transmission Date: 20110831
  Serious: Yes (Other)
  Sender: FDA-Public Use
  Company Number: US-AMGEN-USASP2011006662

PATIENT
  Age: 76 Year
  Sex: Female

DRUGS (1)
  1. PROLIA [Suspect]
     Indication: OSTEOPOROSIS POSTMENOPAUSAL
     Dosage: 60 MG, Q6MO

REACTIONS (5)
  - WOUND INFECTION STAPHYLOCOCCAL [None]
  - MYALGIA [None]
  - DRY SKIN [None]
  - SKIN DISORDER [None]
  - ARTHRALGIA [None]
